FAERS Safety Report 10886400 (Version 5)
Quarter: 2015Q3

REPORT INFORMATION
  Report Type: Spontaneous
  Country: US (occurrence: US)
  Receive Date: 20150304
  Receipt Date: 20150714
  Transmission Date: 20151125
  Serious: Yes (Hospitalization, Disabling, Other)
  Sender: FDA-Public Use
  Company Number: US-009507513-1107USA01066

PATIENT
  Sex: Female

DRUGS (3)
  1. ALENDRONATE SODIUM. [Suspect]
     Active Substance: ALENDRONATE SODIUM
     Indication: OSTEOPOROSIS
     Dosage: 70 MG, QW
     Route: 048
     Dates: start: 20080606, end: 20081018
  2. FOSAMAX [Suspect]
     Active Substance: ALENDRONATE SODIUM
     Indication: OSTEOPOROSIS
     Dosage: 70 MG, QW
     Route: 048
     Dates: start: 20010609, end: 20061218
  3. VITAMINS (UNSPECIFIED) [Concomitant]
     Active Substance: VITAMINS
     Indication: ROUTINE HEALTH MAINTENANCE
     Dosage: UNK, QD

REACTIONS (32)
  - Cataract [Unknown]
  - Hypercholesterolaemia [Unknown]
  - Pelvic pain [Unknown]
  - Pneumonitis [Unknown]
  - Radiculopathy [Recovering/Resolving]
  - Extranodal marginal zone B-cell lymphoma (MALT type) [Unknown]
  - Anaemia [Unknown]
  - Tenosynovitis [Unknown]
  - Fatigue [Unknown]
  - Haematoma [Unknown]
  - Seronegative arthritis [Unknown]
  - Underweight [Unknown]
  - Impaired healing [Unknown]
  - Diarrhoea [Unknown]
  - Pain in extremity [Unknown]
  - Pain in extremity [Unknown]
  - Femur fracture [Unknown]
  - Transient ischaemic attack [Unknown]
  - Dizziness [Unknown]
  - Osteoporosis [Unknown]
  - Femur fracture [Unknown]
  - Bone disorder [Unknown]
  - Asthma [Unknown]
  - Seasonal allergy [Unknown]
  - Open reduction of fracture [Unknown]
  - Fall [Unknown]
  - Hypothyroidism [Unknown]
  - Osteoarthritis [Unknown]
  - Spinal column stenosis [Unknown]
  - Vitamin D deficiency [Unknown]
  - Back pain [Unknown]
  - Foot fracture [Unknown]

NARRATIVE: CASE EVENT DATE: 2008
